FAERS Safety Report 6198899-4 (Version None)
Quarter: 2009Q2

REPORT INFORMATION
  Report Type: 
  Country: None (occurrence: None)
  Receive Date: 20090522
  Receipt Date: 20090514
  Transmission Date: 20091009
  Serious: Yes (Hospitalization)
  Sender: FDA-Public Use
  Company Number: PL-JNJFOC-20090304676

PATIENT
  Sex: Male
  Weight: 95 kg

DRUGS (37)
  1. GOLIMUMAB [Suspect]
     Route: 058
  2. GOLIMUMAB [Suspect]
     Route: 058
  3. GOLIMUMAB [Suspect]
     Route: 058
  4. GOLIMUMAB [Suspect]
     Route: 058
  5. GOLIMUMAB [Suspect]
     Route: 058
  6. GOLIMUMAB [Suspect]
     Route: 058
  7. GOLIMUMAB [Suspect]
     Route: 058
  8. GOLIMUMAB [Suspect]
     Route: 058
  9. GOLIMUMAB [Suspect]
     Route: 058
  10. GOLIMUMAB [Suspect]
     Route: 058
  11. GOLIMUMAB [Suspect]
     Route: 058
  12. GOLIMUMAB [Suspect]
     Route: 058
  13. GOLIMUMAB [Suspect]
     Route: 058
  14. GOLIMUMAB [Suspect]
     Route: 058
  15. GOLIMUMAB [Suspect]
     Route: 058
  16. GOLIMUMAB [Suspect]
     Route: 058
  17. GOLIMUMAB [Suspect]
     Route: 058
  18. GOLIMUMAB [Suspect]
     Route: 058
  19. GOLIMUMAB [Suspect]
     Route: 058
  20. GOLIMUMAB [Suspect]
     Route: 058
  21. GOLIMUMAB [Suspect]
     Route: 058
  22. GOLIMUMAB [Suspect]
     Route: 058
  23. GOLIMUMAB [Suspect]
     Route: 058
  24. GOLIMUMAB [Suspect]
     Route: 058
  25. GOLIMUMAB [Suspect]
     Route: 058
  26. GOLIMUMAB [Suspect]
     Route: 058
  27. GOLIMUMAB [Suspect]
     Route: 058
  28. GOLIMUMAB [Suspect]
     Route: 058
  29. GOLIMUMAB [Suspect]
     Indication: PSORIATIC ARTHROPATHY
     Route: 058
  30. ATENOLOL [Concomitant]
     Route: 048
  31. FOLIC ACID [Concomitant]
     Route: 048
  32. PERINDOPRIL ERBUMINE [Concomitant]
     Route: 048
  33. INDAPAMIDE [Concomitant]
     Route: 048
  34. DICLOFENAC SODIUM [Concomitant]
     Route: 048
  35. METHOTREXATE SODIUM [Concomitant]
     Route: 048
  36. GLICLAZIDE [Concomitant]
     Route: 048
  37. NAPROXEN [Concomitant]
     Route: 048

REACTIONS (7)
  - BLOOD PRESSURE INCREASED [None]
  - CATARACT [None]
  - CONDITION AGGRAVATED [None]
  - EYE INFECTION TOXOPLASMAL [None]
  - GLAUCOMA [None]
  - PSORIASIS [None]
  - UVEITIS [None]
